FAERS Safety Report 17365019 (Version 1)
Quarter: 2020Q1

REPORT INFORMATION
  Report Type: Spontaneous
  Country: US (occurrence: US)
  Receive Date: 20200204
  Receipt Date: 20200204
  Transmission Date: 20200409
  Serious: No
  Sender: FDA-Public Use
  Company Number: US-SHIRE-US202003735

PATIENT
  Age: 47 Year
  Sex: Female

DRUGS (1)
  1. GAMMAGARD LIQUID [Suspect]
     Active Substance: HUMAN IMMUNOGLOBULIN G
     Indication: PRODUCT USED FOR UNKNOWN INDICATION
     Dosage: UNK UNK, EVERY 4 WK
     Route: 042
     Dates: start: 20200128

REACTIONS (3)
  - Infusion related reaction [Unknown]
  - Dehydration [Unknown]
  - Headache [Unknown]

NARRATIVE: CASE EVENT DATE: 20200128
